FAERS Safety Report 21028584 (Version 1)
Quarter: 2022Q2

REPORT INFORMATION
  Report Type: Spontaneous
  Country: ES (occurrence: ES)
  Receive Date: 20220630
  Receipt Date: 20220630
  Transmission Date: 20220721
  Serious: Yes (Other)
  Sender: FDA-Public Use
  Company Number: None

PATIENT
  Age: 69 Year
  Sex: Female

DRUGS (12)
  1. AMOXICILLIN\CLAVULANIC ACID [Suspect]
     Active Substance: AMOXICILLIN\CLAVULANIC ACID
     Indication: Cellulitis
     Dosage: 3 DOSAGE FORMS DAILY; 1-1-1, AMOXICILLIN/CLAVULANIC ACID 875 MG/125 MG 30 TABLETS
     Route: 048
     Dates: start: 20220429
  2. VALPROATE SODIUM [Concomitant]
     Active Substance: VALPROATE SODIUM
     Indication: Product used for unknown indication
     Dosage: DEPAKINE 500 MG GASTRO-RESISTANT TABLETS, 100 TABLETS
  3. LEXATIN [Concomitant]
     Indication: Product used for unknown indication
     Dosage: LEXATIN 3 MG HARD CAPSULES, 30 CAPSULES
  4. FLUCONAZOLE [Concomitant]
     Active Substance: FLUCONAZOLE
     Indication: Product used for unknown indication
  5. METFORMIN [Concomitant]
     Active Substance: METFORMIN HYDROCHLORIDE
     Indication: Product used for unknown indication
     Dosage: METFORMIN 850 MG 50 TABLETS
  6. OMEPRAZOL NORMON [Concomitant]
     Indication: Product used for unknown indication
     Dosage: OMEPRAZOLE NORMON 20 MG HARD GASTRO-RESISTANT CAPSULES EFG, 28
  7. CICLOPIROX [Concomitant]
     Active Substance: CICLOPIROX
     Indication: Product used for unknown indication
     Dosage: CICLOCHEMCICLOCHEM 15 MG/G SHAMPOO, 1 BOTTLE OF 100 ML
  8. ZALDIAR [Concomitant]
     Active Substance: ACETAMINOPHEN\TRAMADOL HYDROCHLORIDE
     Indication: Product used for unknown indication
     Dosage: 37.5 MG/325 MG FILM-COATED TABLETS, 60 TABLETS
  9. LORMETAZEPAM [Concomitant]
     Active Substance: LORMETAZEPAM
     Indication: Product used for unknown indication
     Dosage: NOCTAMID 2 MG TABLETS, 20 TABLETS
  10. ADVENTAN [Concomitant]
     Indication: Product used for unknown indication
     Dosage: ADVENT 1 MG/G CREAM, 1 TUBE OF 60 G
  11. SEROQUEL [Concomitant]
     Active Substance: QUETIAPINE FUMARATE
     Indication: Product used for unknown indication
     Dosage: SEROQUEL 100 MG FILM-COATED TABLETS, 60 TABLETS
  12. PLENUR [Concomitant]
     Indication: Product used for unknown indication
     Dosage: PLENUR 400 MG , 100 TABLETS

REACTIONS (3)
  - Toxic skin eruption [Recovering/Resolving]
  - Rash erythematous [Recovering/Resolving]
  - Eczema [Recovering/Resolving]

NARRATIVE: CASE EVENT DATE: 20220513
